FAERS Safety Report 5392688-6 (Version None)
Quarter: 2007Q3

REPORT INFORMATION
  Report Type: 
  Country: None (occurrence: None)
  Receive Date: 20070720
  Receipt Date: 20070711
  Transmission Date: 20080115
  Serious: Yes (Other)
  Sender: FDA-Public Use
  Company Number: GB-ABBOTT-05P-167-0317228-00

PATIENT
  Sex: Female

DRUGS (9)
  1. VALPROATE SODIUM [Suspect]
     Indication: EPILEPSY
  2. VALPROATE SODIUM [Suspect]
  3. VALPROATE SODIUM [Suspect]
  4. PHENYTOIN [Concomitant]
     Indication: DRUG USE FOR UNKNOWN INDICATION
  5. PHENYTOIN [Concomitant]
  6. PHENYTOIN [Concomitant]
     Dates: start: 19880501
  7. METRONIDOZOLE [Concomitant]
     Indication: DRUG USE FOR UNKNOWN INDICATION
  8. TRIMETHOPRIM [Concomitant]
     Indication: DRUG USE FOR UNKNOWN INDICATION
  9. AMOXICILLIN W/CLAVULANATE POTASSIUM [Concomitant]
     Indication: DRUG USE FOR UNKNOWN INDICATION

REACTIONS (4)
  - ABORTION SPONTANEOUS [None]
  - CONVULSION [None]
  - PLACENTAL DISORDER [None]
  - VAGINAL HAEMORRHAGE [None]
